FAERS Safety Report 18748824 (Version 1)
Quarter: 2021Q1

REPORT INFORMATION
  Report Type: Spontaneous
  Country: US (occurrence: US)
  Receive Date: 20210115
  Receipt Date: 20210115
  Transmission Date: 20210419
  Serious: No
  Sender: FDA-Public Use
  Company Number: US-BIOMARINAP-US-2020-133434

PATIENT
  Age: 10 Year
  Sex: Female
  Weight: 23 kg

DRUGS (1)
  1. VIMIZIM [Suspect]
     Active Substance: ELOSULFASE ALFA
     Indication: PRODUCT USED FOR UNKNOWN INDICATION
     Dosage: UNK, QW
     Route: 042
     Dates: start: 20191206

REACTIONS (5)
  - Catheter site swelling [Not Recovered/Not Resolved]
  - Catheter site pain [Not Recovered/Not Resolved]
  - Catheter site erythema [Not Recovered/Not Resolved]
  - Catheter site infection [Not Recovered/Not Resolved]
  - Catheter site discharge [Not Recovered/Not Resolved]

NARRATIVE: CASE EVENT DATE: 20201110
